FAERS Safety Report 23864040 (Version 1)
Quarter: 2024Q2

REPORT INFORMATION
  Report Type: Spontaneous
  Country: CN (occurrence: None)
  Receive Date: 20240516
  Receipt Date: 20240516
  Transmission Date: 20240716
  Serious: Yes (Hospitalization, Other)
  Sender: FDA-Public Use
  Company Number: 2024A111544

PATIENT
  Age: 54 Year
  Sex: Female
  Weight: 60 kg

DRUGS (2)
  1. OSIMERTINIB [Suspect]
     Active Substance: OSIMERTINIB
     Indication: Lung neoplasm malignant
     Dosage: UNKNOWN
     Route: 048
     Dates: start: 20240329
  2. BEVACIZUMAB [Concomitant]
     Active Substance: BEVACIZUMAB

REACTIONS (1)
  - Myelosuppression [Recovering/Resolving]

NARRATIVE: CASE EVENT DATE: 20240420
